FAERS Safety Report 10533945 (Version 1)
Quarter: 2014Q4

REPORT INFORMATION
  Report Type: Spontaneous
  Country: US (occurrence: None)
  Receive Date: 20141021
  Receipt Date: 20141021
  Transmission Date: 20150529
  Serious: Yes (Other)
  Sender: FDA-Public Use
  Company Number: None

PATIENT
  Age: 48 Year
  Sex: Female
  Weight: 78.02 kg

DRUGS (1)
  1. CEFUROXIME AXETIL. [Suspect]
     Active Substance: CEFUROXIME AXETIL
     Indication: SINUSITIS
     Dosage: 1 PILL 2X^S PER DAY TWICE DAILY TAKEN BY MOUTH
     Route: 048
     Dates: start: 20141019, end: 20141020

REACTIONS (2)
  - Renal pain [None]
  - Thirst [None]
